FAERS Safety Report 5850581-6 (Version None)
Quarter: 2008Q3

REPORT INFORMATION
  Report Type: 
  Country: None (occurrence: None)
  Receive Date: 20080818
  Receipt Date: 20080730
  Transmission Date: 20090109
  Serious: Yes (Hospitalization)
  Sender: FDA-Public Use
  Company Number: 19959

PATIENT
  Age: 53 Year
  Sex: Female

DRUGS (17)
  1. VINCRISTINE [Suspect]
     Dosage: 2 MG IV
     Route: 042
     Dates: start: 20080212
  2. DOXORUBICIN HCL [Suspect]
  3. PREDNISONE TAB [Suspect]
     Dosage: 100 MG PO
     Route: 048
     Dates: start: 20080212
  4. ROMIPLOSTIM [Suspect]
     Indication: THROMBOCYTOPENIA
     Dosage: 71.429 MG FORTNIGHTLY
     Dates: start: 20080213
  5. PEGFILGRASTIM [Suspect]
     Indication: CHEMOTHERAPY
     Dosage: 6 MG FORNIGHTLY SC
     Route: 058
     Dates: start: 20080213
  6. CYCLOPHOSPHAMIDE [Suspect]
  7. BETAMETHASONE DIPROPIONATE [Concomitant]
  8. MUPIROCIN [Concomitant]
  9. HYDROXYCHLOROQUINE SULFATE [Concomitant]
  10. POTASSIUM CHLORIDE [Concomitant]
  11. FAMOTIDINE [Concomitant]
  12. SENOKOT [Concomitant]
  13. ATIVAN [Concomitant]
  14. BENADRYL /00000401/ [Concomitant]
  15. HALDOL SOLUTAB [Concomitant]
  16. SULFADIAZINE SILVER [Concomitant]
  17. DEXTROPROPOXYPHENE HYDROCHLORIDE [Concomitant]

REACTIONS (14)
  - ANAEMIA [None]
  - BLOOD MAGNESIUM DECREASED [None]
  - DRUG ERUPTION [None]
  - ERYTHEMA [None]
  - FACIAL PAIN [None]
  - FEBRILE NEUTROPENIA [None]
  - HEART RATE INCREASED [None]
  - MUCOSAL INFLAMMATION [None]
  - NAUSEA [None]
  - ORAL PAIN [None]
  - PLATELET COUNT DECREASED [None]
  - RASH PAPULAR [None]
  - UPPER RESPIRATORY TRACT INFECTION [None]
  - WHITE BLOOD CELL COUNT DECREASED [None]
